FAERS Safety Report 5005812-1 (Version None)
Quarter: 2006Q2

REPORT INFORMATION
  Report Type: 
  Country: None (occurrence: None)
  Receive Date: 20060516
  Receipt Date: 20060503
  Transmission Date: 20061013
  Serious: Yes (Death)
  Sender: FDA-Public Use
  Company Number: US200605001075

PATIENT
  Age: 30 Year
  Sex: Female

DRUGS (1)
  1. XIGRIS [Suspect]
     Indication: TOXIC SHOCK SYNDROME
     Dates: start: 20060101, end: 20060101

REACTIONS (1)
  - HAEMORRHAGE INTRACRANIAL [None]
